FAERS Safety Report 8119605-X (Version None)
Quarter: 2012Q1

REPORT INFORMATION
  Report Type: 
  Country: None (occurrence: None)
  Receive Date: 20120207
  Receipt Date: 20120129
  Transmission Date: 20120608
  Serious: Yes (Disabling, Other)
  Sender: FDA-Public Use
  Company Number: PHHY2012MX008538

PATIENT
  Sex: Female

DRUGS (1)
  1. DIOVAN HCT [Suspect]
     Indication: HYPERTENSION
     Dosage: 1 DF, (320/25 MG, ONE TABLET BY DAY)

REACTIONS (2)
  - HYPOACUSIS [None]
  - CEREBROVASCULAR ACCIDENT [None]
